FAERS Safety Report 18936718 (Version 2)
Quarter: 2021Q1

REPORT INFORMATION
  Report Type: Spontaneous
  Country: US (occurrence: US)
  Receive Date: 20210224
  Receipt Date: 20210319
  Transmission Date: 20210420
  Serious: Yes (Other)
  Sender: FDA-Public Use
  Company Number: US-ASTRAZENECA-2021A073017

PATIENT
  Age: 68 Year
  Sex: Female

DRUGS (1)
  1. BYDUREON [Suspect]
     Active Substance: EXENATIDE
     Indication: TYPE 2 DIABETES MELLITUS
     Route: 065

REACTIONS (25)
  - Carpal tunnel syndrome [Unknown]
  - Device malfunction [Unknown]
  - Arthralgia [Not Recovered/Not Resolved]
  - Incorrect dose administered by device [Unknown]
  - Coating in mouth [Unknown]
  - Impaired gastric emptying [Not Recovered/Not Resolved]
  - Musculoskeletal discomfort [Unknown]
  - Injection site dysaesthesia [Unknown]
  - Weight decreased [Unknown]
  - Decreased appetite [Recovered/Resolved]
  - Injection site mass [Unknown]
  - Injection site laceration [Unknown]
  - Hunger [Not Recovered/Not Resolved]
  - Dry throat [Unknown]
  - Memory impairment [Unknown]
  - Injection site extravasation [Unknown]
  - Dysphagia [Unknown]
  - Throat tightness [Unknown]
  - Vomiting [Unknown]
  - Product preparation error [Unknown]
  - Lip dry [Unknown]
  - Gastrooesophageal reflux disease [Unknown]
  - Injection site haemorrhage [Unknown]
  - Product solubility abnormal [Unknown]
  - Oropharyngeal pain [Unknown]

NARRATIVE: CASE EVENT DATE: 2020
